FAERS Safety Report 7262802-6 (Version None)
Quarter: 2011Q1

REPORT INFORMATION
  Report Type: 
  Country: None (occurrence: None)
  Receive Date: 20110130
  Receipt Date: 20100909
  Transmission Date: 20110831
  Serious: No
  Sender: FDA-Public Use
  Company Number: US-ABBOTT-10P-163-0670683-00

PATIENT
  Sex: Female

DRUGS (2)
  1. LUPRON [Concomitant]
     Indication: ENDOMETRIOSIS
  2. HUMIRA [Suspect]
     Indication: RHEUMATOID ARTHRITIS
     Dates: start: 20100825

REACTIONS (5)
  - INFLAMMATION [None]
  - ARTHRALGIA [None]
  - OEDEMA PERIPHERAL [None]
  - DEVICE MALFUNCTION [None]
  - FEELING ABNORMAL [None]
